FAERS Safety Report 17658293 (Version 2)
Quarter: 2020Q2

REPORT INFORMATION
  Report Type: Spontaneous
  Country: US (occurrence: US)
  Receive Date: 20200412
  Receipt Date: 20200604
  Transmission Date: 20200713
  Serious: No
  Sender: FDA-Public Use
  Company Number: US-ASTRAZENECA-2020SE43117

PATIENT
  Sex: Male
  Weight: 93 kg

DRUGS (2)
  1. SYMBICORT [Suspect]
     Active Substance: BUDESONIDE\FORMOTEROL FUMARATE DIHYDRATE
     Indication: IRRITABLE BOWEL SYNDROME
     Dosage: 160/4.5,2 PUFF,TWO TIMES A DAY
     Route: 055
     Dates: start: 20191217
  2. SYMBICORT [Suspect]
     Active Substance: BUDESONIDE\FORMOTEROL FUMARATE DIHYDRATE
     Indication: WHEEZING
     Dosage: 160/4.5,2 PUFF,TWO TIMES A DAY
     Route: 055
     Dates: start: 20191217

REACTIONS (4)
  - Visual impairment [Unknown]
  - Intentional product use issue [Unknown]
  - Incorrect dose administered [Unknown]
  - Device issue [Unknown]
